FAERS Safety Report 22228598 (Version 2)
Quarter: 2023Q2

REPORT INFORMATION
  Report Type: Spontaneous
  Country: CO (occurrence: CO)
  Receive Date: 20230419
  Receipt Date: 20230425
  Transmission Date: 20230721
  Serious: Yes (Other)
  Sender: FDA-Public Use
  Company Number: CO-PFIZER INC-PV202300070719

PATIENT
  Age: 50 Year
  Sex: Female

DRUGS (2)
  1. SUTENT [Suspect]
     Active Substance: SUNITINIB MALATE
     Indication: Gastrointestinal stromal tumour
     Dosage: 50 MG
     Dates: start: 2020
  2. SUTENT [Suspect]
     Active Substance: SUNITINIB MALATE
     Indication: Sarcoma metastatic

REACTIONS (4)
  - Nephrolithiasis [Recovering/Resolving]
  - Urethral obstruction [Recovered/Resolved]
  - Chapped lips [Unknown]
  - Inflammation [Unknown]
